FAERS Safety Report 4433363-1 (Version None)
Quarter: 2004Q3

REPORT INFORMATION
  Report Type: 
  Country: None (occurrence: None)
  Receive Date: 20040824
  Receipt Date: 20040818
  Transmission Date: 20050211
  Serious: Yes (Other)
  Sender: FDA-Public Use
  Company Number: 2004228860GB

PATIENT
  Age: 50 Year
  Sex: Female

DRUGS (1)
  1. ZYVOX [Suspect]
     Indication: OSTEOMYELITIS

REACTIONS (3)
  - DIARRHOEA [None]
  - DIPLOPIA [None]
  - VOMITING [None]
